FAERS Safety Report 17974525 (Version 2)
Quarter: 2020Q3

REPORT INFORMATION
  Report Type: Spontaneous
  Country: US (occurrence: US)
  Receive Date: 20200702
  Receipt Date: 20200713
  Transmission Date: 20201103
  Serious: No
  Sender: FDA-Public Use
  Company Number: US-PFIZER INC-2020252780

PATIENT
  Age: 41 Year
  Sex: Male

DRUGS (4)
  1. TASIGNA [Suspect]
     Active Substance: NILOTINIB
     Dosage: UNK
  2. SPRYCEL [Suspect]
     Active Substance: DASATINIB
     Dosage: UNK
  3. BOSULIF [Suspect]
     Active Substance: BOSUTINIB MONOHYDRATE
     Indication: CHRONIC MYELOID LEUKAEMIA
     Dosage: UNK
  4. GLEEVEC [Suspect]
     Active Substance: IMATINIB MESYLATE
     Dosage: UNK

REACTIONS (1)
  - Neoplasm progression [Unknown]
